FAERS Safety Report 26004216 (Version 1)
Quarter: 2025Q4

REPORT INFORMATION
  Report Type: Spontaneous
  Country: US (occurrence: US)
  Receive Date: 20251106
  Receipt Date: 20251106
  Transmission Date: 20260118
  Serious: No
  Sender: LEO PHARM
  Company Number: US-LEO Pharma-383973

PATIENT
  Age: 31 Year
  Sex: Male

DRUGS (2)
  1. ADBRY [Suspect]
     Active Substance: TRALOKINUMAB-LDRM
     Indication: Eczema
     Dosage: ADBRY 300 MG/2 ML PEN, INJECT 2 PENS (600MG) UNDER THE SKIN ON DAY 1 (10/15/25), THEN?INJECT 1 PEN E
     Dates: start: 20251015
  2. ADBRY [Suspect]
     Active Substance: TRALOKINUMAB-LDRM
     Indication: Eczema
     Dates: start: 20251029

REACTIONS (1)
  - Visual impairment [Recovering/Resolving]
